FAERS Safety Report 4456098-8 (Version None)
Quarter: 2004Q3

REPORT INFORMATION
  Report Type: 
  Country: None (occurrence: None)
  Receive Date: 20040920
  Receipt Date: 20040913
  Transmission Date: 20050211
  Serious: Yes (Death)
  Sender: FDA-Public Use
  Company Number: US-JNJFOC-20040903571

PATIENT
  Age: 68 Year
  Sex: Male

DRUGS (4)
  1. ACETAMINOPHEN [Suspect]
     Indication: SUICIDE ATTEMPT
  2. VICODIN [Suspect]
     Indication: SUICIDE ATTEMPT
  3. ASPIRIN [Suspect]
     Indication: SUICIDE ATTEMPT
  4. DOXYLAMINE (DOXYLAMINE) [Suspect]
     Indication: SUICIDE ATTEMPT

REACTIONS (24)
  - ABNORMAL BEHAVIOUR [None]
  - ANALGESIC DRUG LEVEL DECREASED [None]
  - BLOOD CREATINE PHOSPHOKINASE INCREASED [None]
  - BLOOD PH DECREASED [None]
  - BLOOD POTASSIUM INCREASED [None]
  - BLOOD PRESSURE DECREASED [None]
  - BLOOD PRESSURE SYSTOLIC INCREASED [None]
  - BLOOD UREA INCREASED [None]
  - BODY TEMPERATURE INCREASED [None]
  - CARDIAC ARREST [None]
  - DRUG SCREEN POSITIVE [None]
  - DYSPNOEA [None]
  - DYSSTASIA [None]
  - GAIT DISTURBANCE [None]
  - HEART RATE INCREASED [None]
  - HYPERHIDROSIS [None]
  - HYPERVENTILATION [None]
  - OPIATES POSITIVE [None]
  - OVERDOSE [None]
  - PCO2 DECREASED [None]
  - PO2 INCREASED [None]
  - RESPIRATORY RATE INCREASED [None]
  - SELF-INDUCED VOMITING [None]
  - THERAPEUTIC AGENT TOXICITY [None]
